FAERS Safety Report 7914435-3 (Version None)
Quarter: 2011Q4

REPORT INFORMATION
  Report Type: 
  Country: None (occurrence: None)
  Receive Date: 20111115
  Receipt Date: 20110920
  Transmission Date: 20120403
  Serious: Yes (Death, Hospitalization, Other)
  Sender: FDA-Public Use
  Company Number: JP-BAYER-200913245BYL

PATIENT
  Age: 75 Year
  Sex: Male
  Weight: 64.3 kg

DRUGS (3)
  1. NEXAVAR [Suspect]
     Dosage: 400 MG (DAILY DOSE), , ORAL
     Route: 048
     Dates: start: 20090813, end: 20090904
  2. KERATINAMIN [Concomitant]
     Indication: PROPHYLAXIS
     Dosage: SINCE BEFORE ADMINISTRATION
     Route: 061
     Dates: end: 20091005
  3. NEXAVAR [Suspect]
     Indication: HEPATIC NEOPLASM MALIGNANT
     Route: 048
     Dates: start: 20090716, end: 20090728

REACTIONS (8)
  - VOMITING [None]
  - ALANINE AMINOTRANSFERASE INCREASED [None]
  - HEPATIC FAILURE [None]
  - DIARRHOEA [None]
  - PALMAR-PLANTAR ERYTHRODYSAESTHESIA SYNDROME [None]
  - NAUSEA [None]
  - PEPTIC ULCER [None]
  - ASPARTATE AMINOTRANSFERASE INCREASED [None]
